FAERS Safety Report 8461891 (Version 2)
Quarter: 2012Q4

REPORT INFORMATION
  Report Type: Spontaneous
  Country: DE (occurrence: None)
  Receive Date: 20120308
  Receipt Date: 20120828
  Transmission Date: 20130627
  Serious: Yes (Other)
  Sender: FDA-Public Use
  Company Number: 2012AT000091

PATIENT
  Age: 90 Year
  Sex: Female
  Weight: 60 kg

DRUGS (4)
  1. ALPROSTADIL [Suspect]
     Indication: DECUBITUS ULCER
     Dosage: 1 AMF; IV
     Route: 042
     Dates: start: 20120210, end: 20120306
  2. HEPARIN [Concomitant]
  3. ANTIHYPERTENSIVES [Concomitant]
  4. COTRIM [Concomitant]

REACTIONS (4)
  - Iron deficiency anaemia [None]
  - Anaemia [None]
  - Blood creatine phosphokinase increased [None]
  - Off label use [None]
